FAERS Safety Report 10086000 (Version 1)
Quarter: 2014Q2

REPORT INFORMATION
  Report Type: Spontaneous
  Country: US (occurrence: US)
  Receive Date: 20140418
  Receipt Date: 20140418
  Transmission Date: 20141212
  Serious: Yes (Other)
  Sender: FDA-Public Use
  Company Number: PHEH2014US007390

PATIENT
  Sex: Female

DRUGS (3)
  1. HYDROCHLOROTHIAZIDE,VALSARTAN [Suspect]
     Dosage: 1 DF, (80 MG VALSA/12.5 MG HCT)
     Dates: start: 201212
  2. METFORMIN [Concomitant]
     Dosage: 500 MG, UNK
  3. COQ10 [Concomitant]

REACTIONS (3)
  - Eye disorder [Unknown]
  - Dyspnoea [Unknown]
  - Heart rate increased [Unknown]
